FAERS Safety Report 19359725 (Version 1)
Quarter: 2021Q2

REPORT INFORMATION
  Report Type: Spontaneous
  Country: FR (occurrence: FR)
  Receive Date: 20210602
  Receipt Date: 20210602
  Transmission Date: 20210717
  Serious: Yes (Other)
  Sender: FDA-Public Use
  Company Number: FR-SLATE RUN PHARMACEUTICALS-21FR000500

PATIENT

DRUGS (11)
  1. DARUNAVIR [Concomitant]
     Active Substance: DARUNAVIR
     Indication: ANTIRETROVIRAL THERAPY
     Route: 065
  2. AZITHROMYCIN USP [Suspect]
     Active Substance: AZITHROMYCIN
     Indication: MYCOBACTERIUM MARINUM INFECTION
     Dosage: 600 MILLIGRAM, QD
     Route: 065
     Dates: start: 2019, end: 2019
  3. RALTEGRAVIR. [Concomitant]
     Active Substance: RALTEGRAVIR
     Indication: ANTIRETROVIRAL THERAPY
     Route: 065
  4. RITONAVIR. [Concomitant]
     Active Substance: RITONAVIR
     Indication: ANTIRETROVIRAL THERAPY
     Route: 065
  5. ETHAMBUTOL [Concomitant]
     Active Substance: ETHAMBUTOL HYDROCHLORIDE
     Indication: MYCOBACTERIAL INFECTION
     Dosage: 1500 MILLIGRAM, QD
     Route: 065
     Dates: start: 2019
  6. RIFABUTIN. [Suspect]
     Active Substance: RIFABUTIN
     Indication: MYCOBACTERIUM MARINUM INFECTION
     Dosage: UNK
     Route: 065
     Dates: start: 2019, end: 2019
  7. TACROLIMUS. [Concomitant]
     Active Substance: TACROLIMUS
     Indication: IMMUNOSUPPRESSANT DRUG THERAPY
     Route: 065
  8. MYCOPHENOLIC ACID. [Concomitant]
     Active Substance: MYCOPHENOLIC ACID
     Indication: IMMUNOSUPPRESSANT DRUG THERAPY
     Dosage: UNK
     Route: 065
  9. RIFABUTIN. [Suspect]
     Active Substance: RIFABUTIN
     Dosage: 150 MILLIGRAM, QD
     Route: 065
     Dates: start: 2019, end: 2019
  10. DOXYCYCLINE. [Suspect]
     Active Substance: DOXYCYCLINE
     Indication: MYCOBACTERIUM MARINUM INFECTION
     Dosage: UNK
     Route: 065
     Dates: start: 2019, end: 2019
  11. ABACAVIR. [Concomitant]
     Active Substance: ABACAVIR
     Indication: ANTIRETROVIRAL THERAPY
     Route: 065

REACTIONS (10)
  - Gastric disorder [Unknown]
  - Toxicity to various agents [Unknown]
  - Hepatitis cholestatic [Unknown]
  - Immune reconstitution inflammatory syndrome [Unknown]
  - Vision blurred [Unknown]
  - Deafness [Unknown]
  - Skin mass [Recovering/Resolving]
  - Renal impairment [Unknown]
  - Off label use [Recovered/Resolved]
  - Neutropenia [Unknown]

NARRATIVE: CASE EVENT DATE: 2019
